FAERS Safety Report 11545690 (Version 2)
Quarter: 2015Q4

REPORT INFORMATION
  Report Type: Spontaneous
  Country: AT (occurrence: AT)
  Receive Date: 20150924
  Receipt Date: 20151023
  Transmission Date: 20160304
  Serious: Yes (Death)
  Sender: FDA-Public Use
  Company Number: AT-CELGENE-AUT-2015092854

PATIENT
  Age: 63 Year
  Sex: Female
  Weight: 104 kg

DRUGS (3)
  1. VIDAZA [Suspect]
     Active Substance: AZACITIDINE
     Indication: ACUTE MYELOID LEUKAEMIA
     Route: 065
     Dates: start: 20120402
  2. ERYTHROCYTES [Concomitant]
     Active Substance: HUMAN RED BLOOD CELL
     Indication: ACUTE MYELOID LEUKAEMIA
     Route: 065
  3. PLATELETS [Concomitant]
     Active Substance: HUMAN PLATELET, ALLOGENIC
     Indication: ACUTE MYELOID LEUKAEMIA
     Route: 065

REACTIONS (5)
  - Infection [Unknown]
  - Skin disorder [Unknown]
  - Acute myeloid leukaemia [Unknown]
  - Multi-organ failure [Fatal]
  - Pneumonia fungal [Unknown]

NARRATIVE: CASE EVENT DATE: 20130904
